FAERS Safety Report 16570801 (Version 1)
Quarter: 2019Q3

REPORT INFORMATION
  Report Type: Spontaneous
  Country: US (occurrence: US)
  Receive Date: 20190712
  Receipt Date: 20190712
  Transmission Date: 20191004
  Serious: Yes (Hospitalization, Disabling, Other)
  Sender: FDA-Public Use
  Company Number: None

PATIENT
  Age: 77 Year
  Sex: Female
  Weight: 63.45 kg

DRUGS (14)
  1. HCTZ [Concomitant]
     Active Substance: HYDROCHLOROTHIAZIDE
  2. POTASSIUM [Concomitant]
     Active Substance: POTASSIUM
  3. TALTZ [Concomitant]
     Active Substance: IXEKIZUMAB
  4. MULTI VITAMIN B COMPLEX [Concomitant]
  5. Q10 [Concomitant]
  6. FLONASE [Concomitant]
     Active Substance: FLUTICASONE PROPIONATE
  7. IRBESARTAN. [Concomitant]
     Active Substance: IRBESARTAN
  8. BYSTOLIC [Concomitant]
     Active Substance: NEBIVOLOL HYDROCHLORIDE
  9. VITAMIN D [Concomitant]
     Active Substance: VITAMIN D NOS
  10. HYDRALAZINE [Suspect]
     Active Substance: HYDRALAZINE HYDROCHLORIDE
     Indication: BLOOD PRESSURE MEASUREMENT
     Route: 048
     Dates: start: 20170103, end: 20190130
  11. GABAPENTIN. [Concomitant]
     Active Substance: GABAPENTIN
  12. ESTRING [Concomitant]
     Active Substance: ESTRADIOL
  13. COENZYME [Concomitant]
     Active Substance: UBIDECARENONE
  14. ZOLPIDEM [Concomitant]
     Active Substance: ZOLPIDEM TARTRATE

REACTIONS (4)
  - Chest pain [None]
  - Neuropathy peripheral [None]
  - Pain in extremity [None]
  - Blood pressure increased [None]
